FAERS Safety Report 6665251-4 (Version None)
Quarter: 2010Q1

REPORT INFORMATION
  Report Type: 
  Country: None (occurrence: None)
  Receive Date: 20100325
  Receipt Date: 20100209
  Transmission Date: 20100710
  Serious: No
  Sender: FDA-Public Use
  Company Number: 2010-00236

PATIENT
  Age: 62 Year
  Sex: Male
  Weight: 104.3273 kg

DRUGS (4)
  1. ZICAM COLD REMEDY RAPIDMELTS [Suspect]
     Dosage: 2-4/X/DAY - 2 DAYS
     Dates: start: 20100207, end: 20100208
  2. BENZOPRIL [Concomitant]
  3. LEVOTHYROXINE [Concomitant]
  4. VITAMIN C [Concomitant]

REACTIONS (1)
  - AGEUSIA [None]
